FAERS Safety Report 7559675-0 (Version None)
Quarter: 2011Q2

REPORT INFORMATION
  Report Type: 
  Country: None (occurrence: None)
  Receive Date: 20110621
  Receipt Date: 20110609
  Transmission Date: 20111010
  Serious: Yes (Hospitalization, Other)
  Sender: FDA-Public Use
  Company Number: US-ROCHE-747876

PATIENT
  Sex: Male
  Weight: 72.6 kg

DRUGS (6)
  1. ACCUTANE [Suspect]
     Route: 048
     Dates: start: 20031203, end: 20040105
  2. AMNESTEEM [Suspect]
     Indication: ACNE
     Route: 065
     Dates: start: 20030925, end: 20031104
  3. ACCUTANE [Suspect]
     Route: 048
     Dates: start: 20040106, end: 20040206
  4. ACCUTANE [Suspect]
     Route: 048
     Dates: start: 20040206, end: 20040306
  5. ACCUTANE [Suspect]
     Indication: ACNE
     Route: 048
     Dates: start: 20030822, end: 20030924
  6. AMNESTEEM [Suspect]
     Route: 065
     Dates: start: 20031105, end: 20031202

REACTIONS (3)
  - ANXIETY [None]
  - COLITIS ULCERATIVE [None]
  - INFLAMMATORY BOWEL DISEASE [None]
